FAERS Safety Report 16016915 (Version 4)
Quarter: 2019Q2

REPORT INFORMATION
  Report Type: Spontaneous
  Country: US (occurrence: US)
  Receive Date: 20190228
  Receipt Date: 20190620
  Transmission Date: 20190711
  Serious: Yes (Other)
  Sender: FDA-Public Use
  Company Number: US-PFIZER INC-2019079660

PATIENT
  Age: 46 Year
  Sex: Male
  Weight: 93 kg

DRUGS (4)
  1. ATARAX [ALPRAZOLAM] [Concomitant]
     Active Substance: ALPRAZOLAM
     Indication: RASH
  2. ATARAX [ALPRAZOLAM] [Concomitant]
     Active Substance: ALPRAZOLAM
     Indication: PRURITUS
     Dosage: UNK
  3. CLEOCIN [Suspect]
     Active Substance: CLINDAMYCIN PHOSPHATE
     Indication: RASH
     Dosage: UNK, 2X/DAY (1% GEL USED TWICE A DAY FROM HEAD TO FOOT)
  4. CLEOCIN [Suspect]
     Active Substance: CLINDAMYCIN PHOSPHATE
     Indication: PRURITUS
     Dosage: UNK (1%, 60 GRAMS, APPLY TO SKIN WHERE RASH WAS BROKEN OUT)
     Route: 061
     Dates: start: 20180703

REACTIONS (3)
  - Product use in unapproved indication [Unknown]
  - Off label use [Unknown]
  - Therapeutic product effect incomplete [Unknown]
